FAERS Safety Report 23981847 (Version 1)
Quarter: 2024Q2

REPORT INFORMATION
  Report Type: Report from Study
  Country: US (occurrence: US)
  Receive Date: 20240617
  Receipt Date: 20240617
  Transmission Date: 20240715
  Serious: Yes (Hospitalization)
  Sender: FDA-Public Use
  Company Number: US-NOVOPROD-1235775

PATIENT
  Sex: Female

DRUGS (1)
  1. OZEMPIC [Suspect]
     Active Substance: SEMAGLUTIDE
     Indication: Diabetes mellitus
     Dosage: 1 MG
     Route: 058
     Dates: start: 202308, end: 202311

REACTIONS (5)
  - Diarrhoea [Unknown]
  - Cardiac failure congestive [Unknown]
  - Mouth swelling [Unknown]
  - Lip swelling [Unknown]
  - Facial paralysis [Unknown]

NARRATIVE: CASE EVENT DATE: 20230101
